FAERS Safety Report 7816617-8 (Version None)
Quarter: 2011Q4

REPORT INFORMATION
  Report Type: 
  Country: None (occurrence: None)
  Receive Date: 20111017
  Receipt Date: 20111005
  Transmission Date: 20120403
  Serious: Yes (Hospitalization)
  Sender: FDA-Public Use
  Company Number: TR-JNJFOC-20111004213

PATIENT
  Age: 43 Year
  Sex: Female

DRUGS (21)
  1. RISPERIDONE [Suspect]
     Route: 065
  2. SERTRALINE HYDROCHLORIDE [Suspect]
     Route: 065
  3. ALPRAZOLAM [Suspect]
     Indication: MAJOR DEPRESSION
     Route: 065
  4. ALPRAZOLAM [Suspect]
     Route: 065
  5. FLUVOXAMINE MALEATE [Suspect]
     Indication: OBSESSIVE-COMPULSIVE DISORDER
     Route: 065
  6. RISPERIDONE [Suspect]
     Route: 065
  7. SERTRALINE HYDROCHLORIDE [Suspect]
     Indication: MAJOR DEPRESSION
     Route: 065
  8. SERTRALINE HYDROCHLORIDE [Suspect]
     Indication: OBSESSIVE THOUGHTS
     Route: 065
  9. ALPRAZOLAM [Suspect]
     Indication: OBSESSIVE-COMPULSIVE DISORDER
     Route: 065
  10. FLUVOXAMINE MALEATE [Suspect]
     Route: 065
  11. RISPERIDONE [Suspect]
     Route: 065
  12. RISPERIDONE [Suspect]
     Route: 065
  13. RISPERIDONE [Suspect]
     Indication: OBSESSIVE-COMPULSIVE DISORDER
     Route: 065
  14. SERTRALINE HYDROCHLORIDE [Suspect]
     Route: 065
  15. ALPRAZOLAM [Suspect]
     Route: 065
  16. BIPERIDEN HYDROCHLORIDE TAB [Suspect]
     Indication: MAJOR DEPRESSION
     Route: 065
  17. RISPERIDONE [Suspect]
     Indication: MAJOR DEPRESSION
     Route: 065
  18. RISPERIDONE [Suspect]
     Route: 065
  19. RISPERIDONE [Suspect]
     Route: 065
  20. BIPERIDEN HYDROCHLORIDE TAB [Suspect]
     Route: 065
  21. MEDAZEPAM [Suspect]
     Indication: OBSESSIVE THOUGHTS
     Route: 065

REACTIONS (2)
  - SUICIDAL IDEATION [None]
  - DRUG INEFFECTIVE [None]
